FAERS Safety Report 24981502 (Version 1)
Quarter: 2025Q1

REPORT INFORMATION
  Report Type: Spontaneous
  Country: GB (occurrence: GB)
  Receive Date: 20250218
  Receipt Date: 20250218
  Transmission Date: 20250408
  Serious: Yes (Other)
  Sender: PFIZER
  Company Number: None

PATIENT
  Age: 90 Year
  Sex: Male

DRUGS (4)
  1. TAFAMIDIS [Suspect]
     Active Substance: TAFAMIDIS
     Indication: Cardiac amyloidosis
     Dosage: 61 MG, 1X/DAY
  2. APIXABAN [Concomitant]
     Active Substance: APIXABAN
  3. FUROSEMIDE [Concomitant]
     Active Substance: FUROSEMIDE
  4. RAMIPRIL [Concomitant]
     Active Substance: RAMIPRIL

REACTIONS (4)
  - Contusion [Not Recovered/Not Resolved]
  - Condition aggravated [Not Recovered/Not Resolved]
  - Headache [Not Recovered/Not Resolved]
  - Weight decreased [Not Recovered/Not Resolved]
